FAERS Safety Report 6072799-2 (Version None)
Quarter: 2009Q1

REPORT INFORMATION
  Report Type: 
  Country: None (occurrence: None)
  Receive Date: 20090205
  Receipt Date: 20090121
  Transmission Date: 20090719
  Serious: Yes (Hospitalization)
  Sender: FDA-Public Use
  Company Number: CLOF-1000293

PATIENT
  Age: 71 Year
  Sex: Female
  Weight: 48 kg

DRUGS (12)
  1. CLOFARABINE (CLOFARABINE) TABLET [Suspect]
     Indication: ACUTE LEUKAEMIA
     Dosage: QD
     Dates: start: 20080908, end: 20080921
  2. PERCOCET [Concomitant]
  3. ZOSYN [Concomitant]
  4. TOBRAMYCIN [Concomitant]
  5. BENADRYL [Concomitant]
  6. ACETAMINOPHEN [Concomitant]
  7. HYDROCODONE (HYDROCODONE) [Concomitant]
  8. ALLOPURINOL [Concomitant]
  9. COMPAZINE (PROCHLORPERAZINE MALEATE) [Concomitant]
  10. CIPRO [Concomitant]
  11. DOCUSATE (DOCUSATE) [Concomitant]
  12. PERCOCET [Concomitant]

REACTIONS (30)
  - ACINETOBACTER INFECTION [None]
  - BLOOD CHLORIDE DECREASED [None]
  - BLOOD CREATININE INCREASED [None]
  - BLOOD PRESSURE INCREASED [None]
  - BLOOD SODIUM DECREASED [None]
  - BLOOD UREA INCREASED [None]
  - BODY TEMPERATURE INCREASED [None]
  - CHOLELITHIASIS [None]
  - DIARRHOEA [None]
  - DRUG TOXICITY [None]
  - FEBRILE NEUTROPENIA [None]
  - FUNGAL OESOPHAGITIS [None]
  - HAEMATOCRIT DECREASED [None]
  - HAEMOGLOBIN DECREASED [None]
  - HEART RATE INCREASED [None]
  - HIATUS HERNIA [None]
  - HYPOKALAEMIA [None]
  - LUNG NEOPLASM [None]
  - NAUSEA [None]
  - OESOPHAGEAL CANDIDIASIS [None]
  - OESOPHAGEAL ULCER [None]
  - OESOPHAGITIS [None]
  - PERICARDIAL EFFUSION [None]
  - PLATELET COUNT DECREASED [None]
  - PLEURAL EFFUSION [None]
  - RED BLOOD CELL COUNT DECREASED [None]
  - SPLENIC CYST [None]
  - SPLENOMEGALY [None]
  - VASCULAR CALCIFICATION [None]
  - VOMITING [None]
